FAERS Safety Report 4933908-9 (Version None)
Quarter: 2006Q1

REPORT INFORMATION
  Report Type: 
  Country: None (occurrence: None)
  Receive Date: 20060301
  Receipt Date: 20060222
  Transmission Date: 20060701
  Serious: Yes (Disabling, Other)
  Sender: FDA-Public Use
  Company Number: 2006026263

PATIENT
  Sex: Male
  Weight: 81.6475 kg

DRUGS (5)
  1. NEURONTIN [Suspect]
     Indication: DIABETIC NEUROPATHY
     Dosage: 800 MG (800 MG, 1 IN 1 D),
  2. VIAGRA [Suspect]
     Indication: ERECTILE DYSFUNCTION
     Dates: start: 20060201
  3. ASPIRIN [Concomitant]
  4. GLUCOPHAGE [Concomitant]
  5. ALL OTHER THERAPEUTIC PRODUCTS (ALL OTHER THERAPEUTIC PRODUCTS) [Concomitant]

REACTIONS (21)
  - ARTHRITIS [None]
  - COLD SWEAT [None]
  - DENTURE WEARER [None]
  - DIABETES MELLITUS [None]
  - DRUG INEFFECTIVE [None]
  - DRY MOUTH [None]
  - EYE HAEMORRHAGE [None]
  - EYE LASER SURGERY [None]
  - FEELING ABNORMAL [None]
  - HEART RATE ABNORMAL [None]
  - HYPERTENSION [None]
  - HYPOAESTHESIA [None]
  - INSOMNIA [None]
  - MOOD ALTERED [None]
  - NERVE INJURY [None]
  - PAIN IN EXTREMITY [None]
  - SEXUAL DYSFUNCTION [None]
  - SUICIDAL IDEATION [None]
  - TOOTH LOSS [None]
  - VASCULAR RUPTURE [None]
  - WEIGHT DECREASED [None]
